FAERS Safety Report 11469174 (Version 2)
Quarter: 2015Q3

REPORT INFORMATION
  Report Type: Spontaneous
  Country: US (occurrence: US)
  Receive Date: 20150903
  Receipt Date: 20150903
  Transmission Date: 20151125
  Serious: Yes (Hospitalization)
  Sender: FDA-Public Use
  Company Number: US-ELI_LILLY_AND_COMPANY-US201108008838

PATIENT
  Sex: Male
  Weight: 79.37 kg

DRUGS (2)
  1. CYMBALTA [Suspect]
     Active Substance: DULOXETINE HYDROCHLORIDE
     Indication: DEPRESSION
     Dosage: 30 MG, QD
     Route: 048
     Dates: start: 20110804, end: 20110805
  2. ATIVAN [Concomitant]
     Active Substance: LORAZEPAM

REACTIONS (1)
  - Generalised tonic-clonic seizure [Recovered/Resolved]
